FAERS Safety Report 6099063-X (Version None)
Quarter: 2009Q1

REPORT INFORMATION
  Report Type: 
  Country: None (occurrence: None)
  Receive Date: 20090302
  Receipt Date: 20090220
  Transmission Date: 20090719
  Serious: Yes (Hospitalization)
  Sender: FDA-Public Use
  Company Number: IT-ELI_LILLY_AND_COMPANY-IT200902005685

PATIENT
  Age: 83 Year
  Sex: Male

DRUGS (2)
  1. ZYPREXA [Suspect]
     Indication: AGITATION
     Dosage: 5 MG, DAILY (1/D)
     Route: 048
     Dates: start: 20090112, end: 20090121
  2. ZYPREXA [Suspect]
     Dosage: 10 MG, DAILY (1/D)
     Route: 048
     Dates: start: 20090122, end: 20090219

REACTIONS (2)
  - FALL [None]
  - GAIT DISTURBANCE [None]
